FAERS Safety Report 19017849 (Version 2)
Quarter: 2022Q1

REPORT INFORMATION
  Report Type: Report from Study
  Country: GB (occurrence: GB)
  Receive Date: 20210317
  Receipt Date: 20220302
  Transmission Date: 20220423
  Serious: Yes (Hospitalization, Other)
  Sender: FDA-Public Use
  Company Number: GB-EMA-DD-20180504-ISHAEVHP-152502

PATIENT
  Age: 43 Year
  Sex: Female

DRUGS (36)
  1. IMODIUM [Suspect]
     Active Substance: LOPERAMIDE HYDROCHLORIDE
     Indication: Diarrhoea
     Route: 048
  2. DOCETAXEL [Suspect]
     Active Substance: DOCETAXEL
     Indication: Breast cancer metastatic
     Route: 042
     Dates: start: 20150616, end: 20150709
  3. DOCETAXEL [Suspect]
     Active Substance: DOCETAXEL
     Route: 042
     Dates: start: 20150616, end: 20150616
  4. DOCETAXEL [Suspect]
     Active Substance: DOCETAXEL
     Dosage: 130 MG, BIW (130 MG, Q3W)
     Route: 042
     Dates: start: 20150709, end: 20150709
  5. DOCETAXEL [Suspect]
     Active Substance: DOCETAXEL
     Dosage: PHARMACEUTICAL FORM: 16
     Route: 042
  6. BENZYDAMINE HYDROCHLORIDE [Suspect]
     Active Substance: BENZYDAMINE HYDROCHLORIDE
     Indication: Mucosal inflammation
     Dosage: LIQUID MOUTHWASH 15 ML/CM3
     Route: 048
  7. PACLITAXEL [Suspect]
     Active Substance: PACLITAXEL
     Indication: Breast cancer metastatic
     Dosage: LOADING DOSE 450 MG FROM 30-JUL-2015 TO 20-AUG-2015 CUMULATIVE:857.1429 MG
     Route: 042
     Dates: start: 20150910, end: 20151022
  8. PACLITAXEL [Suspect]
     Active Substance: PACLITAXEL
     Route: 042
     Dates: start: 20150910, end: 20150910
  9. PACLITAXEL [Suspect]
     Active Substance: PACLITAXEL
     Route: 042
     Dates: start: 20151022, end: 20151022
  10. PACLITAXEL [Suspect]
     Active Substance: PACLITAXEL
     Route: 042
     Dates: start: 20150820, end: 20150820
  11. PACLITAXEL [Suspect]
     Active Substance: PACLITAXEL
     Dosage: 450 MG,Q3W
     Route: 042
     Dates: start: 20150730, end: 20150730
  12. PACLITAXEL [Suspect]
     Active Substance: PACLITAXEL
     Dosage: LOADING DOSE
     Route: 042
     Dates: start: 20150730, end: 20150820
  13. PACLITAXEL [Suspect]
     Active Substance: PACLITAXEL
     Route: 042
     Dates: start: 20150616, end: 20150616
  14. PACLITAXEL [Suspect]
     Active Substance: PACLITAXEL
     Route: 041
     Dates: start: 20150616
  15. PACLITAXEL [Suspect]
     Active Substance: PACLITAXEL
     Dosage: 340 MG, Q3W
     Route: 042
     Dates: start: 20150609, end: 20150609
  16. PACLITAXEL [Suspect]
     Active Substance: PACLITAXEL
     Route: 042
     Dates: start: 20150820, end: 20150820
  17. PACLITAXEL [Suspect]
     Active Substance: PACLITAXEL
     Route: 042
     Dates: start: 20150730, end: 20150730
  18. PERTUZUMAB [Suspect]
     Active Substance: PERTUZUMAB
     Indication: Breast cancer metastatic
     Dosage: LOADING DOSE
     Route: 042
     Dates: start: 20150615, end: 20150615
  19. PERTUZUMAB [Suspect]
     Active Substance: PERTUZUMAB
     Dosage: MAINTAINACE DOSE. ALSO RECEIVED 840 MG FROM 15-JUN-2015 TO 15-JUN-2015 1 DAYS
     Route: 042
     Dates: start: 20150709
  20. PERTUZUMAB [Suspect]
     Active Substance: PERTUZUMAB
     Dosage: 567 MG (LOADING DOSE) (TOTAL)
     Route: 041
     Dates: start: 20150616, end: 20150616
  21. TRASTUZUMAB [Suspect]
     Active Substance: TRASTUZUMAB
     Indication: Breast cancer metastatic
     Dosage: LOADING DOSE
     Route: 041
     Dates: start: 20150616, end: 20150616
  22. TRASTUZUMAB [Suspect]
     Active Substance: TRASTUZUMAB
     Dosage: 420 MG, TIW (MAINTAINANCE DOSE)
     Route: 041
     Dates: start: 20150709, end: 20150709
  23. TRASTUZUMAB [Suspect]
     Active Substance: TRASTUZUMAB
     Dosage: LOADING DOSE
     Route: 041
     Dates: start: 20150516, end: 20150516
  24. TRASTUZUMAB [Suspect]
     Active Substance: TRASTUZUMAB
     Dosage: 356
     Route: 065
  25. TRASTUZUMAB [Suspect]
     Active Substance: TRASTUZUMAB
     Dosage: LOADING DOSE. RECEIVED MAINTAINANCE DOSE 420 MG ON 09-JUL-2015
  26. CHLORPHENIRAMINE MALEATE [Concomitant]
     Active Substance: CHLORPHENIRAMINE MALEATE
     Indication: Product used for unknown indication
     Route: 042
     Dates: start: 20150709, end: 20150709
  27. COCODAMOL [Concomitant]
     Active Substance: ACETAMINOPHEN\CODEINE PHOSPHATE
     Indication: Product used for unknown indication
     Route: 048
  28. COCODAMOL [Concomitant]
     Active Substance: ACETAMINOPHEN\CODEINE PHOSPHATE
     Dosage: 2000 MG, QD
     Route: 048
  29. AMOXICILLIN\CLAVULANATE POTASSIUM [Concomitant]
     Active Substance: AMOXICILLIN\CLAVULANATE POTASSIUM
     Indication: Cough
     Dosage: COUGH WITH YELLOW SPUTUM
     Route: 048
     Dates: start: 20180110, end: 20180117
  30. DOMPERIDONE [Concomitant]
     Active Substance: DOMPERIDONE
     Indication: Product used for unknown indication
     Dosage: 30MG, QD
     Route: 048
     Dates: start: 20150709
  31. DOMPERIDONE [Concomitant]
     Active Substance: DOMPERIDONE
     Dosage: 30 MG, QD
     Route: 048
     Dates: start: 20190709
  32. HYDROCORTISONE [Concomitant]
     Active Substance: HYDROCORTISONE
     Indication: Product used for unknown indication
     Route: 042
     Dates: start: 20150709, end: 20150709
  33. METFORMIN [Concomitant]
     Active Substance: METFORMIN HYDROCHLORIDE
     Indication: Diabetes mellitus
     Route: 048
  34. METFORMIN [Concomitant]
     Active Substance: METFORMIN HYDROCHLORIDE
     Dosage: 2G, QD
     Route: 048
  35. TRAMADOL [Concomitant]
     Active Substance: TRAMADOL
     Indication: Pain
     Route: 048
  36. TRAMADOL [Concomitant]
     Active Substance: TRAMADOL
     Dosage: 100MG, QD
     Route: 048

REACTIONS (9)
  - Febrile neutropenia [Recovered/Resolved]
  - Neuropathy peripheral [Recovered/Resolved]
  - Diarrhoea [Recovered/Resolved]
  - Chest pain [Recovered/Resolved]
  - Mucosal inflammation [Recovered/Resolved]
  - Swelling [Not Recovered/Not Resolved]
  - Fatigue [Recovered/Resolved]
  - Nausea [Not Recovered/Not Resolved]
  - Vomiting [Not Recovered/Not Resolved]

NARRATIVE: CASE EVENT DATE: 20150908
